FAERS Safety Report 8505333-5 (Version None)
Quarter: 2012Q3

REPORT INFORMATION
  Report Type: 
  Country: None (occurrence: None)
  Receive Date: 20120712
  Receipt Date: 20120709
  Transmission Date: 20120928
  Serious: Yes (Other)
  Sender: FDA-Public Use
  Company Number: US-PFIZER INC-2012148714

PATIENT
  Sex: Male
  Weight: 28.118 kg

DRUGS (3)
  1. GENOTROPIN [Suspect]
     Dosage: 0.8 MG, 1X/DAY
     Dates: start: 20080301
  2. GENOTROPIN [Suspect]
     Indication: GROWTH HORMONE DEFICIENCY
     Dosage: 0.6 MG, 1X/DAY
     Dates: start: 20080301
  3. GENOTROPIN [Suspect]
     Dosage: 1.2 MG, 1X/DAY

REACTIONS (2)
  - MUSCLE MASS [None]
  - PRECOCIOUS PUBERTY [None]
